FAERS Safety Report 13339865 (Version 1)
Quarter: 2017Q1

REPORT INFORMATION
  Report Type: Spontaneous
  Country: JP (occurrence: JP)
  Receive Date: 20170315
  Receipt Date: 20170315
  Transmission Date: 20170428
  Serious: Yes (Death, Other)
  Sender: FDA-Public Use
  Company Number: PHHY2017JP034381

PATIENT
  Age: 38 Year
  Sex: Male

DRUGS (5)
  1. LEUCOVORIN CALCIUM. [Suspect]
     Active Substance: LEUCOVORIN CALCIUM
     Indication: METASTASES TO BONE
     Route: 065
  2. PACLITAXEL. [Suspect]
     Active Substance: PACLITAXEL
     Indication: DISSEMINATED INTRAVASCULAR COAGULATION
     Dosage: UNK UNK, QW
     Route: 065
  3. 5-FLUOROURACIL [Suspect]
     Active Substance: FLUOROURACIL
     Indication: METASTASES TO BONE
     Route: 065
  4. PACLITAXEL. [Suspect]
     Active Substance: PACLITAXEL
     Indication: PLEURAL EFFUSION
  5. OXALIPLATIN. [Suspect]
     Active Substance: OXALIPLATIN
     Indication: METASTASES TO BONE
     Route: 065

REACTIONS (4)
  - Pleural effusion [Unknown]
  - Hyponatraemia [Unknown]
  - Drug ineffective [Fatal]
  - Disseminated intravascular coagulation [Recovering/Resolving]
